FAERS Safety Report 6718753-6 (Version None)
Quarter: 2010Q2

REPORT INFORMATION
  Report Type: 
  Country: None (occurrence: None)
  Receive Date: 20100511
  Receipt Date: 20100504
  Transmission Date: 20101027
  Serious: Yes (Congenital Anomaly)
  Sender: FDA-Public Use
  Company Number: US-BIOGENIDEC-2009BI040805

PATIENT
  Age: 27 Day
  Sex: Female
  Weight: 3 kg

DRUGS (1)
  1. TYSABRI [Suspect]
     Indication: DRUG EXPOSURE DURING PREGNANCY
     Route: 064
     Dates: start: 20071022, end: 20090319

REACTIONS (2)
  - ANOMALY OF EXTERNAL EAR CONGENITAL [None]
  - UMBILICAL HERNIA [None]
